FAERS Safety Report 12612125 (Version 1)
Quarter: 2016Q3

REPORT INFORMATION
  Report Type: Spontaneous
  Country: US (occurrence: US)
  Receive Date: 20160801
  Receipt Date: 20160801
  Transmission Date: 20161109
  Serious: No
  Sender: FDA-Public Use
  Company Number: US-GLAXOSMITHKLINE-US2016108407

PATIENT
  Age: 84 Year
  Sex: Female

DRUGS (4)
  1. MINERAL ICE PAIN RELIEVING [Concomitant]
     Active Substance: MENTHOL
     Indication: PRODUCT USED FOR UNKNOWN INDICATION
     Dosage: UNK
  2. VOLTAREN [Suspect]
     Active Substance: DICLOFENAC SODIUM
     Indication: ARTHRITIS
     Dosage: UNK
  3. VOLTAREN [Suspect]
     Active Substance: DICLOFENAC SODIUM
     Dosage: 2 G, TID
     Dates: start: 20160419, end: 20160521
  4. SUNBLOCK [Suspect]
     Active Substance: OCTINOXATE\TITANIUM DIOXIDE
     Indication: PRODUCT USED FOR UNKNOWN INDICATION
     Dosage: UNK

REACTIONS (17)
  - Application site erythema [Not Recovered/Not Resolved]
  - Application site rash [Not Recovered/Not Resolved]
  - Dermatitis contact [Unknown]
  - Vein discolouration [Unknown]
  - Miliaria [Unknown]
  - Application site discomfort [Unknown]
  - Incorrect dosage administered [Unknown]
  - Application site acne [Unknown]
  - Hypertension [Unknown]
  - Wrong technique in product usage process [Unknown]
  - Application site pain [Not Recovered/Not Resolved]
  - Application site pruritus [Not Recovered/Not Resolved]
  - Chest pain [Unknown]
  - Vulvovaginal pruritus [Unknown]
  - Hyperhidrosis [Unknown]
  - Application site reaction [Unknown]
  - Vasodilatation [Not Recovered/Not Resolved]

NARRATIVE: CASE EVENT DATE: 20160419
